FAERS Safety Report 6079573-1 (Version None)
Quarter: 2009Q1

REPORT INFORMATION
  Report Type: 
  Country: None (occurrence: None)
  Receive Date: 20090217
  Receipt Date: 20090211
  Transmission Date: 20090719
  Serious: No
  Sender: FDA-Public Use
  Company Number: US-JNJFOC-20090203386

PATIENT
  Sex: Female
  Weight: 64.86 kg

DRUGS (1)
  1. DURAGESIC-100 [Suspect]
     Indication: NEUROPATHY PERIPHERAL
     Route: 062

REACTIONS (5)
  - ABDOMINAL PAIN UPPER [None]
  - DECREASED INTEREST [None]
  - DRUG DOSE OMISSION [None]
  - PAIN [None]
  - WITHDRAWAL SYNDROME [None]
